FAERS Safety Report 14126516 (Version 2)
Quarter: 2018Q1

REPORT INFORMATION
  Report Type: Not Available
  Country: US (occurrence: US)
  Receive Date: 20171025
  Receipt Date: 20180216
  Transmission Date: 20180508
  Serious: Yes (Hospitalization)
  Sender: FDA-Public Use
  Company Number: US-NEUROCRINE BIOSCIENCES INC.-2017NBI00478

PATIENT
  Age: 56 Year
  Sex: Female

DRUGS (13)
  1. BENEPROTEIN [Concomitant]
     Active Substance: DIETARY SUPPLEMENT
  2. SIMVASTATIN. [Concomitant]
     Active Substance: SIMVASTATIN
  3. VITAMIN C [Concomitant]
     Active Substance: ASCORBIC ACID
  4. MELATONIN [Concomitant]
     Active Substance: MELATONIN
  5. TRAZODONE [Concomitant]
     Active Substance: TRAZODONE HYDROCHLORIDE
  6. INGREZZA [Suspect]
     Active Substance: VALBENAZINE
     Route: 048
     Dates: start: 20170710, end: 2017
  7. ZOLOFT [Concomitant]
     Active Substance: SERTRALINE HYDROCHLORIDE
  8. SUPER B COMPLEX [Concomitant]
     Active Substance: CYANOCOBALAMIN\DEXPANTHENOL\NIACINAMIDE\PYRIDOXINE HYDROCHLORIDE\RIBOFLAVIN 5^-PHOSPHATE SODIUM\THIAMINE HYDROCHLORIDE\VITAMIN B COMPLEX
  9. VITAMIN D [Concomitant]
     Active Substance: CHOLECALCIFEROL
  10. IBUPROFEN. [Concomitant]
     Active Substance: IBUPROFEN
  11. BIOTIN [Concomitant]
     Active Substance: BIOTIN
  12. LORAZEPAM. [Concomitant]
     Active Substance: LORAZEPAM
  13. INGREZZA [Suspect]
     Active Substance: VALBENAZINE
     Indication: TARDIVE DYSKINESIA
     Route: 048
     Dates: start: 20170704, end: 20170709

REACTIONS (4)
  - Gait disturbance [Recovered/Resolved]
  - Dehydration [Recovered/Resolved]
  - Diarrhoea [Recovered/Resolved]
  - Cardiac disorder [Unknown]

NARRATIVE: CASE EVENT DATE: 20170705
